FAERS Safety Report 16810623 (Version 2)
Quarter: 2019Q3

REPORT INFORMATION
  Report Type: Report from Study
  Country: None (occurrence: DE)
  Receive Date: 20190916
  Receipt Date: 20190918
  Transmission Date: 20191005
  Serious: Yes (Hospitalization, Other)
  Sender: FDA-Public Use
  Company Number: DE-ABBVIE-19K-062-2920794-00

PATIENT
  Age: 68 Year
  Sex: Male

DRUGS (8)
  1. DUODOPA [Suspect]
     Active Substance: CARBIDOPA\LEVODOPA
     Indication: PARKINSON^S DISEASE
     Dosage: MD 1 ML; CRD 3.5 ML/H; CRN 2.6 ML/H; ED 1.1 ML, LONG-TERM
     Route: 050
     Dates: start: 20180213
  2. QUETIAPINE. [Concomitant]
     Active Substance: QUETIAPINE
     Indication: DRUG THERAPY ENHANCEMENT
     Route: 048
     Dates: start: 201803, end: 201812
  3. MOVICOL [Concomitant]
     Active Substance: POLYETHYLENE GLYCOL 3350\POTASSIUM CHLORIDE\SODIUM BICARBONATE\SODIUM CHLORIDE
     Indication: CONSTIPATION
     Dosage: SOLUTION, AS REQUIRED
     Dates: start: 201709
  4. MADOPAR LT [Concomitant]
     Active Substance: BENSERAZIDE HYDROCHLORIDE\LEVODOPA
     Indication: IMMOBILE
     Dosage: 100MG/25MG, AS REQUIRED
     Dates: start: 201606
  5. CLOZAPINE. [Suspect]
     Active Substance: CLOZAPINE
     Dosage: 175MG
     Route: 048
     Dates: start: 2019
  6. CLOZAPINE. [Suspect]
     Active Substance: CLOZAPINE
     Indication: DELUSIONAL DISORDER, UNSPECIFIED TYPE
     Route: 065
     Dates: start: 201812
  7. CLOZAPINE. [Suspect]
     Active Substance: CLOZAPINE
     Dosage: 150MG/50G
     Route: 048
     Dates: start: 20190820, end: 2019
  8. ONGENTYS [Concomitant]
     Active Substance: OPICAPONE
     Indication: ADJUVANT THERAPY

REACTIONS (7)
  - Dysphagia [Not Recovered/Not Resolved]
  - Hallucination, auditory [Unknown]
  - Delusional disorder, unspecified type [Unknown]
  - Hallucination, visual [Unknown]
  - Psychotic disorder [Not Recovered/Not Resolved]
  - Intentional self-injury [Unknown]
  - Dysaesthesia [Unknown]

NARRATIVE: CASE EVENT DATE: 201809
